FAERS Safety Report 5023582-8 (Version None)
Quarter: 2006Q2

REPORT INFORMATION
  Report Type: 
  Country: None (occurrence: None)
  Receive Date: 20060612
  Receipt Date: 20060601
  Transmission Date: 20061013
  Serious: Yes (Life-Threatening, Hospitalization)
  Sender: FDA-Public Use
  Company Number: GR-ROCHE-450708

PATIENT
  Age: 70 Year
  Sex: Female
  Weight: 73 kg

DRUGS (6)
  1. BONIVA [Suspect]
     Indication: OSTEOPOROSIS
     Dosage: FORM REPORTED AS FILM COATED TABLETS.
     Route: 048
     Dates: start: 20060526
  2. SALOSPIR [Concomitant]
     Dosage: DRUG REPORTED AS ^ACETYLSALICYLIC ACID/SALOSPIR^
     Route: 048
  3. HYDROCHLOROTHIAZIDE/LOSARTAN [Concomitant]
     Route: 048
  4. COZAAR [Concomitant]
     Route: 048
  5. CALCITONIN NASAL SPRAY [Concomitant]
     Dosage: DRUG REPORTED AS^CALCITONIN SALMON/CALSYNAR NASAL SPRAY^
  6. MIACALCIN [Concomitant]
     Dosage: DRUG REPORTED AS ^CALCITONIN SALMON/MIACALCIC NASAL SPRAY^

REACTIONS (6)
  - ARTHRALGIA [None]
  - BONE PAIN [None]
  - CHEST DISCOMFORT [None]
  - HEADACHE [None]
  - NASOPHARYNGITIS [None]
  - PYREXIA [None]
